FAERS Safety Report 5238513-5 (Version None)
Quarter: 2007Q1

REPORT INFORMATION
  Report Type: 
  Country: None (occurrence: None)
  Receive Date: 20070215
  Receipt Date: 20070207
  Transmission Date: 20070707
  Serious: Yes (Hospitalization)
  Sender: FDA-Public Use
  Company Number: US-GLAXOSMITHKLINE-A0634603A

PATIENT
  Sex: Female

DRUGS (6)
  1. REQUIP [Suspect]
     Indication: RESTLESS LEGS SYNDROME
     Route: 048
     Dates: start: 20061018, end: 20061101
  2. ENTOCORT [Concomitant]
  3. PROTONIX [Concomitant]
  4. SYNTHROID [Concomitant]
  5. BONIVA [Concomitant]
  6. CLONAZEPAM [Concomitant]

REACTIONS (12)
  - ASTHENIA [None]
  - CHEST PAIN [None]
  - CROHN'S DISEASE [None]
  - DIZZINESS [None]
  - DYSPNOEA [None]
  - FALL [None]
  - LOSS OF CONSCIOUSNESS [None]
  - MALAISE [None]
  - RETCHING [None]
  - SENSITIVITY OF TEETH [None]
  - TOOTHACHE [None]
  - VOMITING [None]
